FAERS Safety Report 11054640 (Version 1)
Quarter: 2015Q2

REPORT INFORMATION
  Report Type: Spontaneous
  Country: AU (occurrence: None)
  Receive Date: 20150421
  Receipt Date: 20150421
  Transmission Date: 20150821
  Serious: Yes (Other)
  Sender: FDA-Public Use
  Company Number: None

PATIENT
  Age: 40 Year
  Sex: Female
  Weight: 65 kg

DRUGS (1)
  1. MIRENA [Suspect]
     Active Substance: LEVONORGESTREL
     Indication: INTRA-UTERINE CONTRACEPTIVE DEVICE
     Dosage: ONE EVERY FIVE YEARS INTRA UTERINE
     Route: 015
     Dates: start: 20100401, end: 20150420

REACTIONS (1)
  - Chloasma [None]

NARRATIVE: CASE EVENT DATE: 20150420
